FAERS Safety Report 7348004-3 (Version None)
Quarter: 2011Q1

REPORT INFORMATION
  Report Type: 
  Country: None (occurrence: None)
  Receive Date: 20110311
  Receipt Date: 20110301
  Transmission Date: 20110831
  Serious: Yes (Other)
  Sender: FDA-Public Use
  Company Number: PHHY2011FR17928

PATIENT
  Sex: Female

DRUGS (9)
  1. ACETAMINOPHEN [Concomitant]
     Dosage: UNK
     Route: 048
  2. INIPOMP [Concomitant]
  3. FEMARA [Suspect]
     Indication: BREAST CANCER FEMALE
     Dosage: 2.5 MG, QD
     Dates: start: 20100501, end: 20100824
  4. GAVISCON [Concomitant]
  5. KESTINLYO [Concomitant]
  6. DEBRIDAT [Concomitant]
  7. ALDACTAZIDE [Suspect]
  8. VASTAREL [Concomitant]
  9. SEROPLEX [Concomitant]

REACTIONS (6)
  - BLOOD ALKALINE PHOSPHATASE INCREASED [None]
  - ALANINE AMINOTRANSFERASE INCREASED [None]
  - MIXED LIVER INJURY [None]
  - GAMMA-GLUTAMYLTRANSFERASE INCREASED [None]
  - GALLBLADDER DISORDER [None]
  - ASPARTATE AMINOTRANSFERASE INCREASED [None]
